FAERS Safety Report 8293889-X (Version None)
Quarter: 2012Q2

REPORT INFORMATION
  Report Type: 
  Country: None (occurrence: None)
  Receive Date: 20120413
  Receipt Date: 20120413
  Transmission Date: 20120825
  Serious: No
  Sender: FDA-Public Use
  Company Number: None

PATIENT
  Sex: Female
  Weight: 54.4316 kg

DRUGS (1)
  1. PROLIA [Suspect]
     Indication: OSTEOPOROSIS
     Dosage: 60MG EVERY 6 MO.
     Dates: start: 20120213

REACTIONS (5)
  - MYALGIA [None]
  - PAIN IN EXTREMITY [None]
  - NECK PAIN [None]
  - BACK PAIN [None]
  - HYPOAESTHESIA [None]
